FAERS Safety Report 26190645 (Version 1)
Quarter: 2025Q4

REPORT INFORMATION
  Report Type: Spontaneous
  Country: US (occurrence: US)
  Receive Date: 20251223
  Receipt Date: 20251223
  Transmission Date: 20260117
  Serious: Yes (Other)
  Sender: RADIUS PHARM
  Company Number: US-RADIUS HEALTH INC.-US-RADIUS-25058371

PATIENT
  Sex: Female

DRUGS (2)
  1. TYMLOS [Suspect]
     Active Substance: ABALOPARATIDE
     Indication: Product used for unknown indication
     Dosage: UNK
     Route: 065
     Dates: end: 202510
  2. TYMLOS [Suspect]
     Active Substance: ABALOPARATIDE
     Dosage: UNK (DOSAGE HAS BEEN LOWER)
     Route: 065
     Dates: start: 2025

REACTIONS (9)
  - Blood pressure fluctuation [Unknown]
  - Facial pain [Unknown]
  - Spinal pain [Unknown]
  - Bruxism [Unknown]
  - Headache [Unknown]
  - Intentional product use issue [Unknown]
  - Intentional dose omission [Unknown]
  - Product storage error [Unknown]
  - Product use issue [Unknown]

NARRATIVE: CASE EVENT DATE: 20250101
